FAERS Safety Report 9952653 (Version 2)
Quarter: 2014Q1

REPORT INFORMATION
  Report Type: Report from Study
  Country: US (occurrence: US)
  Receive Date: 20140304
  Receipt Date: 20140314
  Transmission Date: 20141002
  Serious: Yes (Hospitalization)
  Sender: FDA-Public Use
  Company Number: US-ABBVIE-14P-163-1208186-00

PATIENT
  Age: 52 Year
  Sex: Female

DRUGS (2)
  1. HUMIRA [Suspect]
     Indication: RHEUMATOID ARTHRITIS
     Route: 058
     Dates: start: 20131003, end: 201401
  2. HUMIRA [Suspect]
     Route: 058
     Dates: start: 20140225

REACTIONS (4)
  - Depression [Recovered/Resolved]
  - Delusion [Recovered/Resolved]
  - Expired drug administered [Unknown]
  - Drug administration error [Unknown]
